FAERS Safety Report 7462668-5 (Version None)
Quarter: 2011Q2

REPORT INFORMATION
  Report Type: 
  Country: None (occurrence: None)
  Receive Date: 20110506
  Receipt Date: 20110426
  Transmission Date: 20111010
  Serious: Yes (Hospitalization, Other)
  Sender: FDA-Public Use
  Company Number: US-AMGEN-USASP2011022111

PATIENT
  Sex: Female

DRUGS (1)
  1. ENBREL [Suspect]
     Dosage: 50 MG, QWK
     Route: 064
     Dates: start: 20050101, end: 20080701

REACTIONS (3)
  - SMALL FOR DATES BABY [None]
  - FOETAL HYPOKINESIA [None]
  - RESPIRATORY DISORDER [None]
